FAERS Safety Report 8349976-0 (Version None)
Quarter: 2012Q2

REPORT INFORMATION
  Report Type: 
  Country: None (occurrence: None)
  Receive Date: 20120510
  Receipt Date: 20120509
  Transmission Date: 20120825
  Serious: Yes (Other)
  Sender: FDA-Public Use
  Company Number: CN-ROCHE-1067467

PATIENT
  Sex: Male
  Weight: 72.5 kg

DRUGS (5)
  1. ADEFOVIR DIPIVOXIL [Concomitant]
     Indication: HEPATITIS B
     Route: 048
  2. NEXAVAR [Concomitant]
     Indication: HEPATIC NEOPLASM MALIGNANT
     Route: 048
  3. XELODA [Suspect]
     Route: 048
  4. XELODA [Suspect]
     Indication: HEPATIC NEOPLASM MALIGNANT
     Route: 048
     Dates: start: 20070101, end: 20080101
  5. LAMIVUDINE (EPIVIR HBV) [Concomitant]
     Indication: HEPATITIS B
     Route: 048

REACTIONS (2)
  - METASTASES TO LUNG [None]
  - PALMAR-PLANTAR ERYTHRODYSAESTHESIA SYNDROME [None]
